FAERS Safety Report 10306819 (Version 3)
Quarter: 2014Q3

REPORT INFORMATION
  Report Type: Spontaneous
  Country: JP (occurrence: JP)
  Receive Date: 20140715
  Receipt Date: 20140801
  Transmission Date: 20150326
  Serious: Yes (Life-Threatening, Other)
  Sender: FDA-Public Use
  Company Number: JP-PFIZER INC-2014195991

PATIENT
  Age: 53 Year
  Sex: Male

DRUGS (9)
  1. CELECOX [Concomitant]
     Active Substance: CELECOXIB
     Dosage: 200 MG, DAILY
     Route: 048
     Dates: start: 20140517, end: 20140527
  2. ETIZOLAM [Suspect]
     Active Substance: ETIZOLAM
     Dosage: 1.5 G, DAILY
     Route: 048
     Dates: start: 20140529, end: 20140531
  3. REBAMIPIDE [Concomitant]
     Active Substance: REBAMIPIDE
     Dosage: 100 MG, DAILY
     Dates: start: 20140517, end: 20140527
  4. LOXOPROFEN TAPE [Concomitant]
     Dosage: 14 TAPES
     Route: 061
     Dates: start: 20140517
  5. MUCOSTA [Concomitant]
     Active Substance: REBAMIPIDE
     Dosage: 300 MG, DAILY
     Dates: start: 20140618, end: 20140625
  6. MYSLEE [Concomitant]
     Active Substance: ZOLPIDEM TARTRATE
     Dosage: 5 MG, DAILY
     Route: 048
     Dates: start: 20140529, end: 20140531
  7. LOXONIN [Concomitant]
     Active Substance: LOXOPROFEN SODIUM
     Dosage: 180 MG, DAILY
     Route: 048
     Dates: start: 20140618, end: 20140625
  8. MOHRUS TAPE [Concomitant]
     Active Substance: KETOPROFEN
     Dosage: UNK
     Route: 061
  9. LYRICA [Suspect]
     Active Substance: PREGABALIN
     Indication: HYPOAESTHESIA
     Dosage: 75 MG, 1X/DAY IN THE EVENING
     Route: 048
     Dates: start: 20140531, end: 20140610

REACTIONS (2)
  - Somnolence [Unknown]
  - Road traffic accident [Unknown]

NARRATIVE: CASE EVENT DATE: 20140619
